FAERS Safety Report 7677616-2 (Version None)
Quarter: 2011Q3

REPORT INFORMATION
  Report Type: 
  Country: None (occurrence: None)
  Receive Date: 20110811
  Receipt Date: 20110802
  Transmission Date: 20111222
  Serious: Yes (Hospitalization)
  Sender: FDA-Public Use
  Company Number: PH-GENZYME-RENA-1001245

PATIENT
  Sex: Female

DRUGS (10)
  1. CALCIUM CARBONATE [Concomitant]
     Indication: HYPERPHOSPHATAEMIA
     Dosage: UNK
     Dates: start: 20110526
  2. KETOLOG [Concomitant]
     Indication: RENAL FAILURE CHRONIC
     Dosage: UNK
     Dates: start: 20110526
  3. BISOPROLOL FUMARATE [Concomitant]
     Indication: HYPERTENSION
     Dosage: 5 MG, QD
     Dates: start: 20110526, end: 20110704
  4. ATORVASTATIN [Concomitant]
     Indication: HYPERLIPIDAEMIA
     Dosage: 20 MG, QD
     Dates: start: 20110526, end: 20110704
  5. RENVELA [Suspect]
     Indication: HYPERPHOSPHATAEMIA
     Dosage: 0.8 G, TID
     Dates: start: 20110526, end: 20110705
  6. ALISKIREN [Concomitant]
     Indication: HYPERTENSION
     Dosage: 150 MG, QD
     Route: 065
     Dates: start: 20110621, end: 20110705
  7. ALLOPURINOL [Concomitant]
     Indication: HYPERURICAEMIA
     Dosage: 100 MG, QD
     Dates: start: 20110526
  8. LISINOPRIL [Concomitant]
     Indication: HYPERTENSION
     Dosage: 20 MG, QD
     Dates: start: 20110526, end: 20110704
  9. FUROSEMIDE [Concomitant]
     Indication: OEDEMA
     Dosage: UNK
     Dates: start: 20110526
  10. SODIUM BICARBONATE [Concomitant]
     Indication: RENAL FAILURE CHRONIC
     Dosage: UNK
     Dates: start: 20110526, end: 20110704

REACTIONS (2)
  - ABDOMINAL DISCOMFORT [None]
  - PALPITATIONS [None]
